FAERS Safety Report 13962988 (Version 1)
Quarter: 2017Q3

REPORT INFORMATION
  Report Type: Spontaneous
  Country: US (occurrence: US)
  Receive Date: 20170913
  Receipt Date: 20170913
  Transmission Date: 20171128
  Serious: Yes (Other)
  Sender: FDA-Public Use
  Company Number: US-DRREDDYS-USA/USA/17/0093363

PATIENT
  Age: 17 Month
  Sex: Male

DRUGS (10)
  1. CYTARABINE. [Suspect]
     Active Substance: CYTARABINE
     Indication: ACUTE MYELOID LEUKAEMIA
     Dosage: DAYS 6-10
     Route: 065
  2. FILGRASTIM [Suspect]
     Active Substance: FILGRASTIM
     Indication: ACUTE MYELOID LEUKAEMIA
     Dosage: 5 MICRO/KG/DOSE, DAYS 5-12
     Route: 065
  3. FLUDARABINE [Suspect]
     Active Substance: FLUDARABINE PHOSPHATE
     Indication: ACUTE MYELOID LEUKAEMIA
     Dosage: 6-10 DAYS
     Route: 065
  4. FILGRASTIM [Suspect]
     Active Substance: FILGRASTIM
     Indication: TRISOMY 21
  5. FLUDARABINE [Suspect]
     Active Substance: FLUDARABINE PHOSPHATE
     Indication: TRISOMY 21
  6. CYTARABINE. [Suspect]
     Active Substance: CYTARABINE
     Indication: TRISOMY 21
  7. VORINOSTAT [Suspect]
     Active Substance: VORINOSTAT
     Indication: TRISOMY 21
  8. DECITABINE. [Suspect]
     Active Substance: DECITABINE
     Indication: TRISOMY 21
  9. DECITABINE. [Suspect]
     Active Substance: DECITABINE
     Indication: ACUTE MYELOID LEUKAEMIA
     Dosage: DAYS 1-5
     Route: 065
  10. VORINOSTAT [Suspect]
     Active Substance: VORINOSTAT
     Indication: ACUTE MYELOID LEUKAEMIA
     Dosage: 1-5 DAYS
     Route: 065

REACTIONS (5)
  - Anaemia [Unknown]
  - Febrile neutropenia [Unknown]
  - Nausea [Unknown]
  - Swelling face [Unknown]
  - Acute myeloid leukaemia [Unknown]
